FAERS Safety Report 4386552-9 (Version None)
Quarter: 2004Q2

REPORT INFORMATION
  Report Type: 
  Country: None (occurrence: None)
  Receive Date: 20040623
  Receipt Date: 20040610
  Transmission Date: 20050107
  Serious: Yes (Other)
  Sender: FDA-Public Use
  Company Number: 2004218408DZ

PATIENT
  Age: 84 Year
  Sex: Female

DRUGS (2)
  1. CELEBREX [Suspect]
     Indication: LOCALISED OSTEOARTHRITIS
     Dosage: 100 MG, BID, ORAL
     Route: 048
     Dates: start: 20040523, end: 20040525
  2. SECTRAL [Concomitant]

REACTIONS (1)
  - PULMONARY OEDEMA [None]
